FAERS Safety Report 10565616 (Version 1)
Quarter: 2014Q4

REPORT INFORMATION
  Report Type: Spontaneous
  Country: US (occurrence: US)
  Receive Date: 20141105
  Receipt Date: 20141105
  Transmission Date: 20150529
  Serious: No
  Sender: FDA-Public Use
  Company Number: US-009507513-1410USA015074

PATIENT
  Age: 75 Year
  Sex: Female

DRUGS (1)
  1. ZETIA [Suspect]
     Active Substance: EZETIMIBE
     Indication: BLOOD CHOLESTEROL INCREASED
     Dosage: 1 TIME DAILY AT NIGHT
     Route: 048
     Dates: start: 201407, end: 201410

REACTIONS (2)
  - Muscular weakness [Unknown]
  - Dysphagia [Unknown]

NARRATIVE: CASE EVENT DATE: 201407
